FAERS Safety Report 18070446 (Version 2)
Quarter: 2020Q3

REPORT INFORMATION
  Report Type: Spontaneous
  Country: NL (occurrence: NL)
  Receive Date: 20200727
  Receipt Date: 20200729
  Transmission Date: 20201103
  Serious: Yes (Other)
  Sender: FDA-Public Use
  Company Number: NL-BRISTOL-MYERS SQUIBB COMPANY-BMS-2020-056406

PATIENT
  Sex: Female

DRUGS (9)
  1. GLIVEC [Suspect]
     Active Substance: IMATINIB MESYLATE
     Indication: CHRONIC MYELOID LEUKAEMIA
     Dosage: 600 MG
     Route: 065
  2. BOSUTINIB [Suspect]
     Active Substance: BOSUTINIB
     Dosage: 300 MG
     Route: 065
  3. NILOTINIB [Suspect]
     Active Substance: NILOTINIB
     Dosage: 400 MG X 2
     Route: 065
     Dates: start: 201310
  4. GLIVEC [Suspect]
     Active Substance: IMATINIB MESYLATE
     Dosage: 400 MG
     Route: 065
     Dates: start: 200703
  5. BOSUTINIB [Suspect]
     Active Substance: BOSUTINIB
     Indication: CHRONIC MYELOID LEUKAEMIA
     Dosage: 400 MG
     Route: 065
  6. GLIVEC [Suspect]
     Active Substance: IMATINIB MESYLATE
     Dosage: 400 MG
     Route: 065
     Dates: start: 201909
  7. BOSUTINIB [Suspect]
     Active Substance: BOSUTINIB
     Dosage: 500 MG
     Route: 065
  8. DASATINIB. [Suspect]
     Active Substance: DASATINIB
     Indication: CHRONIC MYELOID LEUKAEMIA
     Dosage: 140 MG X 1
     Route: 065
  9. NILOTINIB [Suspect]
     Active Substance: NILOTINIB
     Indication: CHRONIC MYELOID LEUKAEMIA
     Dosage: 400 MG X 2
     Route: 065
     Dates: start: 20100216

REACTIONS (19)
  - Subdural haematoma [Unknown]
  - Road traffic accident [Unknown]
  - Breast cancer [Unknown]
  - Intermittent claudication [Unknown]
  - Hepatic cirrhosis [Unknown]
  - Large intestine polyp [Unknown]
  - Renal neoplasm [Unknown]
  - Liver disorder [Not Recovered/Not Resolved]
  - Skin exfoliation [Unknown]
  - Neutropenia [Unknown]
  - Decreased appetite [Recovering/Resolving]
  - Peripheral arterial occlusive disease [Unknown]
  - Pleural effusion [Unknown]
  - Weight decreased [Unknown]
  - Abdominal discomfort [Unknown]
  - COVID-19 [Unknown]
  - Ageusia [Not Recovered/Not Resolved]
  - Dyspnoea [Unknown]
  - Nausea [Recovering/Resolving]

NARRATIVE: CASE EVENT DATE: 200805
